FAERS Safety Report 16831670 (Version 1)
Quarter: 2019Q3

REPORT INFORMATION
  Report Type: Spontaneous
  Country: PT (occurrence: PT)
  Receive Date: 20190920
  Receipt Date: 20190920
  Transmission Date: 20191005
  Serious: Yes (Life-Threatening, Hospitalization, Other)
  Sender: FDA-Public Use
  Company Number: PT-IPCA LABORATORIES LIMITED-IPC-2019-PT-001381

PATIENT

DRUGS (12)
  1. METFORMIN [Interacting]
     Active Substance: METFORMIN HYDROCHLORIDE
     Indication: WEIGHT CONTROL
     Dosage: 230 MG, QD
     Route: 048
     Dates: start: 201706, end: 201807
  2. ORANGE. [Suspect]
     Active Substance: ORANGE
     Indication: WEIGHT CONTROL
     Dosage: UNK
     Route: 065
  3. FUROSEMIDE. [Suspect]
     Active Substance: FUROSEMIDE
     Indication: WEIGHT CONTROL
     Dosage: 30 MG, BID
     Route: 048
     Dates: start: 201706, end: 201807
  4. BUPROPION. [Interacting]
     Active Substance: BUPROPION
     Indication: WEIGHT CONTROL
     Dosage: 120MG BID
     Route: 048
     Dates: start: 201706, end: 201807
  5. CHLORDIAZEPOXIDE. [Interacting]
     Active Substance: CHLORDIAZEPOXIDE
     Indication: WEIGHT CONTROL
     Dosage: 10 MG, BID
     Route: 048
     Dates: start: 201706, end: 201807
  6. TRI-GYNERA [Interacting]
     Active Substance: ETHINYL ESTRADIOL\GESTODENE
     Indication: CONTRACEPTION
     Dosage: UNK
     Route: 048
     Dates: start: 2002, end: 201807
  7. HOODIA GORDONII [Interacting]
     Active Substance: DIETARY SUPPLEMENT
     Indication: WEIGHT CONTROL
     Dosage: 70 MG, BID
     Route: 048
     Dates: start: 201706, end: 201807
  8. ETHINYLESTRADIOL + GESTODENE (UNK. FORMULATION/CONCENTRATION) [Interacting]
     Active Substance: ETHINYL ESTRADIOL\GESTODENE
     Indication: WEIGHT CONTROL
     Dosage: UNK (0.03  / 0.075 MG)
     Route: 048
  9. LEVOTIROXINA SODICA [Concomitant]
     Active Substance: LEVOTHYROXINE SODIUM
     Indication: HYPOTHYROIDISM
     Dosage: 0.1 MG, UNK
     Route: 048
     Dates: start: 2014
  10. TOPIRAMATE. [Interacting]
     Active Substance: TOPIRAMATE
     Indication: WEIGHT CONTROL
     Dosage: 35 MG, BID
     Route: 048
     Dates: start: 201706, end: 201807
  11. CASCARA SAGRADA [Interacting]
     Active Substance: FRANGULA PURSHIANA BARK
     Indication: WEIGHT CONTROL
     Dosage: 60 MG, BID
     Dates: start: 201706, end: 201807
  12. EXTRATO DE LARANJA (ORANGE EXTRACT) [Interacting]
     Active Substance: DIETARY SUPPLEMENT\HERBALS
     Indication: WEIGHT DECREASED
     Dosage: 200 MG, BID
     Route: 048
     Dates: start: 201706, end: 201807

REACTIONS (4)
  - Headache [Recovering/Resolving]
  - Product use in unapproved indication [Unknown]
  - Cerebral venous thrombosis [Unknown]
  - Drug interaction [Unknown]

NARRATIVE: CASE EVENT DATE: 20180619
